FAERS Safety Report 13332902 (Version 1)
Quarter: 2017Q1

REPORT INFORMATION
  Report Type: Spontaneous
  Country: JP (occurrence: JP)
  Receive Date: 20170314
  Receipt Date: 20170314
  Transmission Date: 20170428
  Serious: Yes (Hospitalization)
  Sender: FDA-Public Use
  Company Number: JP-NOVOPROD-530595

PATIENT
  Age: 78 Year
  Sex: Male
  Weight: 51 kg

DRUGS (3)
  1. RYZODEG 70/30 [Suspect]
     Active Substance: INSULIN ASPART\INSULIN DEGLUDEC
     Indication: DIABETES MELLITUS
     Dosage: 23 IU, QD (MORNING)
     Route: 058
     Dates: start: 201604
  2. SUINY [Concomitant]
     Active Substance: ANAGLIPTIN
     Indication: DIABETES MELLITUS
     Dosage: 100MG X 2
     Route: 048
  3. RYZODEG 70/30 [Suspect]
     Active Substance: INSULIN ASPART\INSULIN DEGLUDEC
     Dosage: DOSE DECREASED
     Route: 058

REACTIONS (2)
  - Hypoglycaemia [Recovered/Resolved]
  - Peripheral artery stenosis [Unknown]

NARRATIVE: CASE EVENT DATE: 201606
